FAERS Safety Report 15575660 (Version 1)
Quarter: 2018Q4

REPORT INFORMATION
  Report Type: Spontaneous
  Country: US (occurrence: US)
  Receive Date: 20181101
  Receipt Date: 20181101
  Transmission Date: 20190205
  Serious: Yes (Death)
  Sender: FDA-Public Use
  Company Number: None

PATIENT
  Sex: Female

DRUGS (6)
  1. PREDNISONE TAB 50MG [Concomitant]
  2. AFINITOR [Suspect]
     Active Substance: EVEROLIMUS
     Indication: BREAST CANCER FEMALE
     Route: 048
  3. LYRICA CAP 50MG [Concomitant]
  4. PRIMIDONE TAB 50MG [Concomitant]
  5. PROCHLORPER TAB 10MG [Concomitant]
  6. ONDANSETRON TAB 8MG [Concomitant]
     Active Substance: ONDANSETRON

REACTIONS (1)
  - Death [None]
